FAERS Safety Report 8021149-0 (Version None)
Quarter: 2012Q1

REPORT INFORMATION
  Report Type: 
  Country: None (occurrence: None)
  Receive Date: 20120104
  Receipt Date: 20111229
  Transmission Date: 20120608
  Serious: No
  Sender: FDA-Public Use
  Company Number: US-PFIZER INC-2011316657

PATIENT
  Sex: Female
  Weight: 63.492 kg

DRUGS (2)
  1. IBUPROFEN (ADVIL) [Suspect]
     Indication: ARTHRITIS
  2. IBUPROFEN (ADVIL) [Suspect]
     Indication: BACK PAIN
     Dosage: 400 MG (2 OF 200MG), 1X/DAY
     Route: 048
     Dates: end: 20111122

REACTIONS (2)
  - ARTHRALGIA [None]
  - SWELLING FACE [None]
